FAERS Safety Report 19538268 (Version 3)
Quarter: 2021Q3

REPORT INFORMATION
  Report Type: Spontaneous
  Country: US (occurrence: US)
  Receive Date: 20210714
  Receipt Date: 20210825
  Transmission Date: 20211014
  Serious: Yes (Other)
  Sender: FDA-Public Use
  Company Number: US-BRISTOL-MYERS SQUIBB COMPANY-BMS-2021-067597

PATIENT
  Age: 26 Year
  Sex: Female

DRUGS (2)
  1. NIVOLUMAB [Suspect]
     Active Substance: NIVOLUMAB
     Indication: GASTROINTESTINAL MELANOMA
     Dosage: 1 MILLIGRAM/KILOGRAM FOR EVERY 21 DAYS
     Route: 065
  2. IPILIMUMAB [Suspect]
     Active Substance: IPILIMUMAB
     Indication: GASTROINTESTINAL MELANOMA
     Dosage: 3 MILLIGRAM/KILOGRAM FOR EVERY 21 DAYS
     Route: 065

REACTIONS (3)
  - Aplasia pure red cell [Unknown]
  - Immune thrombocytopenia [Unknown]
  - Immune-mediated hepatitis [Unknown]
